FAERS Safety Report 6886391-0 (Version None)
Quarter: 2010Q3

REPORT INFORMATION
  Report Type: 
  Country: None (occurrence: None)
  Receive Date: 20100729
  Receipt Date: 20090616
  Transmission Date: 20110219
  Serious: No
  Sender: FDA-Public Use
  Company Number: US-PFIZER INC-2009206960

PATIENT
  Sex: Female

DRUGS (9)
  1. CELEBREX [Suspect]
     Indication: ARTHRITIS
     Dosage: 200 MG, UNK
     Dates: start: 20050829, end: 20090401
  2. DYAZIDE [Concomitant]
  3. ATENOLOL [Concomitant]
     Dosage: 25 MG, UNK
  4. PAROXETINE HCL [Concomitant]
     Dosage: 20 MG, UNK
  5. LIPITOR [Concomitant]
     Dosage: 20 MG, UNK
  6. LAMICTAL [Concomitant]
     Dosage: 100MG 1 AND 1/2 TABLETS AND SOMETIMES ONE TABLET
  7. INSULIN [Concomitant]
  8. ACETAMINOPHEN [Concomitant]
  9. ALEVE (CAPLET) [Concomitant]

REACTIONS (3)
  - ARTHRITIS [None]
  - EXPIRED DRUG ADMINISTERED [None]
  - RASH [None]
